FAERS Safety Report 7980398-8 (Version None)
Quarter: 2011Q4

REPORT INFORMATION
  Report Type: 
  Country: None (occurrence: None)
  Receive Date: 20111214
  Receipt Date: 20111208
  Transmission Date: 20120403
  Serious: Yes (Other)
  Sender: FDA-Public Use
  Company Number: CA-JNJFOC-20111204602

PATIENT
  Age: 34 Year
  Sex: Male
  Weight: 145.15 kg

DRUGS (7)
  1. SYNTHROID [Concomitant]
     Indication: THYROID DISORDER
     Route: 065
  2. FLUTICASONE PROPIONATE [Concomitant]
     Indication: MULTIPLE ALLERGIES
     Route: 065
  3. NICORETTE [Suspect]
     Indication: SMOKING CESSATION THERAPY
     Dosage: ^ONE SLEEVE A DAY^
     Route: 055
     Dates: start: 20100803
  4. CITRAZINE [Concomitant]
     Indication: MULTIPLE ALLERGIES
     Route: 065
  5. LANSOPRAZOLE [Concomitant]
     Indication: DYSPEPSIA
     Route: 065
  6. BECLOMETHASONE AQUEOUS [Concomitant]
     Indication: MULTIPLE ALLERGIES
     Route: 065
  7. HYDROCORTISONE [Concomitant]
     Indication: PRODUCT USED FOR UNKNOWN INDICATION
     Route: 065

REACTIONS (3)
  - DEPENDENCE [None]
  - ASTHMA [None]
  - INTENTIONAL DRUG MISUSE [None]
